FAERS Safety Report 9216433 (Version 2)
Quarter: 2013Q4

REPORT INFORMATION
  Report Type: Spontaneous
  Country: US (occurrence: US)
  Receive Date: 20130408
  Receipt Date: 20131108
  Transmission Date: 20140711
  Serious: Yes (Other)
  Sender: FDA-Public Use
  Company Number: US-BAYER-2013-042710

PATIENT
  Age: 23 Year
  Sex: Female

DRUGS (3)
  1. OCELLA [Suspect]
     Indication: CONTRACEPTION
     Dosage: UNK
     Dates: start: 2010
  2. SUCRALFATE [Concomitant]
     Dosage: 1 G, UNK
     Route: 048
     Dates: start: 20110920
  3. ONDANSETRON [Concomitant]
     Dosage: 4 MG, UNK
     Route: 048
     Dates: start: 20111021

REACTIONS (5)
  - Biliary dyskinesia [None]
  - Cholecystectomy [None]
  - Pain [None]
  - Injury [None]
  - Pain [None]
